FAERS Safety Report 9941185 (Version 1)
Quarter: 2014Q1

REPORT INFORMATION
  Report Type: Report from Study
  Country: US (occurrence: US)
  Receive Date: 20140303
  Receipt Date: 20140303
  Transmission Date: 20141002
  Serious: No
  Sender: FDA-Public Use
  Company Number: US-ABBVIE-13P-163-1043194-00

PATIENT
  Age: 65 Year
  Sex: Male

DRUGS (6)
  1. HUMIRA [Suspect]
     Indication: PSORIATIC ARTHROPATHY
     Dates: end: 201211
  2. HUMIRA [Suspect]
     Dates: start: 201211, end: 20130108
  3. HUMIRA [Suspect]
     Dates: start: 20130108
  4. SIMVASTATIN [Concomitant]
     Indication: BLOOD CHOLESTEROL
  5. VITAMINS [Concomitant]
     Indication: PRODUCT USED FOR UNKNOWN INDICATION
  6. NAPROSYN [Concomitant]
     Indication: PAIN

REACTIONS (7)
  - Anxiety [Recovering/Resolving]
  - Inappropriate schedule of drug administration [Unknown]
  - Psoriatic arthropathy [Unknown]
  - Pain [Unknown]
  - Gait disturbance [Unknown]
  - Device malfunction [Unknown]
  - Wrong technique in drug usage process [Unknown]
